FAERS Safety Report 16770553 (Version 1)
Quarter: 2019Q3

REPORT INFORMATION
  Report Type: Spontaneous
  Country: FR (occurrence: FR)
  Receive Date: 20190904
  Receipt Date: 20190904
  Transmission Date: 20191005
  Serious: Yes (Hospitalization)
  Sender: FDA-Public Use
  Company Number: FR-TEVA-2019-FR-1101150

PATIENT
  Age: 87 Year
  Sex: Male
  Weight: 59 kg

DRUGS (8)
  1. BILASTINE [Concomitant]
     Active Substance: BILASTINE
     Dosage: 20 MG
     Route: 048
     Dates: end: 20190604
  2. FUROSEMIDE. [Concomitant]
     Active Substance: FUROSEMIDE
     Dosage: 80 MG
     Route: 048
     Dates: end: 20190604
  3. CORTANCYL [Concomitant]
     Active Substance: PREDNISONE
     Dosage: 8 MG
     Route: 048
  4. AMLODIPINE [Concomitant]
     Active Substance: AMLODIPINE BESYLATE
     Dosage: 5 MG
     Route: 048
     Dates: end: 20190612
  5. BACTRIM [Concomitant]
     Active Substance: SULFAMETHOXAZOLE\TRIMETHOPRIM
     Indication: PROPHYLAXIS
     Route: 048
     Dates: end: 20190604
  6. ELIQUIS 2.5 MG, FILMED TABLET [Concomitant]
     Route: 048
  7. ALLOPURINOL. [Suspect]
     Active Substance: ALLOPURINOL
     Indication: PROPHYLAXIS
     Route: 048
     Dates: end: 20190605
  8. IMUREL [Interacting]
     Active Substance: AZATHIOPRINE SODIUM
     Indication: VASCULITIS
     Dosage: 125 MG
     Route: 048
     Dates: start: 20190501, end: 20190604

REACTIONS (4)
  - Lymphopenia [Recovered/Resolved]
  - Drug interaction [Recovered/Resolved]
  - Anaemia [Recovered/Resolved]
  - Neutrophil count decreased [Recovered/Resolved]

NARRATIVE: CASE EVENT DATE: 20190604
